FAERS Safety Report 8090233 (Version 3)
Quarter: 2014Q3

REPORT INFORMATION
  Report Type: Spontaneous
  Country: US (occurrence: US)
  Receive Date: 20110815
  Receipt Date: 20140922
  Transmission Date: 20150326
  Serious: Yes (Hospitalization)
  Sender: FDA-Public Use
  Company Number: US-GLAXOSMITHKLINE-A0940554A

PATIENT
  Age: 68 Year
  Sex: Male
  Weight: 85.2 kg

DRUGS (1)
  1. MELPHALAN [Suspect]
     Active Substance: MELPHALAN
     Indication: BONE MARROW TRANSPLANT
     Dosage: 200MGM2 SINGLE DOSE
     Route: 042
     Dates: start: 20101214, end: 20101214

REACTIONS (4)
  - Anaemia [Recovered/Resolved]
  - Febrile neutropenia [Recovered/Resolved]
  - Mucosal inflammation [Recovered/Resolved]
  - Enterocolitis infectious [Recovered/Resolved]

NARRATIVE: CASE EVENT DATE: 20101214
